FAERS Safety Report 13239752 (Version 1)
Quarter: 2017Q1

REPORT INFORMATION
  Report Type: Spontaneous
  Country: US (occurrence: US)
  Receive Date: 20170216
  Receipt Date: 20170216
  Transmission Date: 20170428
  Serious: No
  Sender: FDA-Public Use
  Company Number: US-PFIZER INC-2016565975

PATIENT
  Age: 77 Year
  Sex: Male
  Weight: 84 kg

DRUGS (9)
  1. ISOSORBIDE. [Concomitant]
     Active Substance: ISOSORBIDE
     Indication: CARDIAC DISORDER
     Dosage: 60 MG, 1X/DAY
  2. MAGNESIUM [Concomitant]
     Active Substance: MAGNESIUM
     Dosage: 400 MG, 1X/DAY
  3. AMBIEN [Concomitant]
     Active Substance: ZOLPIDEM TARTRATE
     Dosage: 10 MG, UNK
  4. INLYTA [Suspect]
     Active Substance: AXITINIB
     Dosage: 2 MG, CYCLIC (FOR SEVEN DAYS AND THEN HE IS OFF FOR A WEEK)
     Route: 048
     Dates: start: 201508
  5. LORAZEPAM. [Concomitant]
     Active Substance: LORAZEPAM
     Dosage: UNK (0.5MG ONCE A DAY AND 1MG AT NIGHT)
  6. HYDROMORPHONE [Concomitant]
     Active Substance: HYDROMORPHONE
     Dosage: 2 MG, AS NEEDED
  7. INLYTA [Suspect]
     Active Substance: AXITINIB
     Indication: RENAL CANCER
     Dosage: 2 MG, CYCLIC (QDX 1 WEEK, THEN 1 WEEK OFF)
     Route: 048
  8. GABAPENTIN. [Concomitant]
     Active Substance: GABAPENTIN
     Dosage: UNK (TWO A DAY)
  9. HYDRALAZINE [Concomitant]
     Active Substance: HYDRALAZINE HYDROCHLORIDE
     Indication: BLOOD PRESSURE ABNORMAL
     Dosage: 50 MG, 4X/DAY

REACTIONS (2)
  - Neoplasm progression [Unknown]
  - Nausea [Unknown]
